FAERS Safety Report 7093377-2 (Version None)
Quarter: 2010Q4

REPORT INFORMATION
  Report Type: 
  Country: None (occurrence: None)
  Receive Date: 20101018
  Receipt Date: 20100115
  Transmission Date: 20110411
  Serious: Yes (Other)
  Sender: FDA-Public Use
  Company Number: HQWYE988103OCT03

PATIENT
  Age: 57 Year
  Sex: Female

DRUGS (3)
  1. PREMARIN [Suspect]
     Dosage: ORAL
     Route: 048
     Dates: start: 19830101
  2. PREMPRO [Suspect]
     Dosage: ORAL
     Route: 048
     Dates: end: 20010101
  3. PROVERA [Suspect]
     Dosage: ORAL
     Route: 048
     Dates: start: 19830101

REACTIONS (1)
  - OVARIAN CANCER METASTATIC [None]
